FAERS Safety Report 19064492 (Version 3)
Quarter: 2021Q2

REPORT INFORMATION
  Report Type: Spontaneous
  Country: US (occurrence: US)
  Receive Date: 20210326
  Receipt Date: 20210503
  Transmission Date: 20210717
  Serious: Yes (Other)
  Sender: FDA-Public Use
  Company Number: US-ORGANON-O2103USA002302

PATIENT
  Sex: Female
  Weight: 92.97 kg

DRUGS (1)
  1. NEXPLANON [Suspect]
     Active Substance: ETONOGESTREL
     Indication: CONTRACEPTION
     Dosage: 1 DOSAGE FORM, LEFT ARM
     Route: 058
     Dates: start: 2011

REACTIONS (6)
  - Complication of device removal [Not Recovered/Not Resolved]
  - Product use issue [Unknown]
  - No adverse event [Unknown]
  - Incorrect product administration duration [Unknown]
  - Complication of device removal [Not Recovered/Not Resolved]
  - Complication associated with device [Recovered/Resolved]

NARRATIVE: CASE EVENT DATE: 2014
